FAERS Safety Report 7606235-9 (Version None)
Quarter: 2011Q3

REPORT INFORMATION
  Report Type: 
  Country: None (occurrence: None)
  Receive Date: 20110713
  Receipt Date: 20110629
  Transmission Date: 20111222
  Serious: Yes (Hospitalization, Other)
  Sender: FDA-Public Use
  Company Number: US-CELGENEUS-163-50794-11062588

PATIENT
  Sex: Female
  Weight: 83.99 kg

DRUGS (8)
  1. CALCIUM CARBONATE [Concomitant]
     Route: 065
  2. VITAMIN D [Concomitant]
     Route: 065
  3. VIDAZA [Suspect]
     Indication: MYELODYSPLASTIC SYNDROME
     Dosage: 150 MILLIGRAM/SQ. METER
     Route: 051
     Dates: start: 20110523, end: 20110527
  4. FISH OIL [Concomitant]
     Route: 065
  5. PROGESTERONE [Concomitant]
     Route: 061
  6. PRILOSEC [Concomitant]
     Dosage: 20 MILLIGRAM
     Route: 065
  7. PROCRIT [Suspect]
     Dosage: 20,000 UNITS
     Route: 058
     Dates: start: 20110523, end: 20110523
  8. PROCRIT [Suspect]
     Dosage: 20,000 UNITS
     Route: 058
     Dates: start: 20110531, end: 20110531

REACTIONS (3)
  - PETECHIAE [None]
  - LEUKOCYTOCLASTIC VASCULITIS [None]
  - PLATELET COUNT DECREASED [None]
